FAERS Safety Report 14297893 (Version 1)
Quarter: 2017Q4

REPORT INFORMATION
  Report Type: Spontaneous
  Country: JP (occurrence: JP)
  Receive Date: 20171218
  Receipt Date: 20171218
  Transmission Date: 20180321
  Serious: Yes (Hospitalization)
  Sender: FDA-Public Use
  Company Number: JP-SUCAMPO PHARMACEUTICALS INC.-SPI201701530

PATIENT
  Age: 93 Year
  Sex: Male

DRUGS (6)
  1. PLAVIX [Concomitant]
     Active Substance: CLOPIDOGREL BISULFATE
  2. AMITIZA [Suspect]
     Active Substance: LUBIPROSTONE
     Indication: CONSTIPATION
     Dosage: 24 MCG, QD
     Route: 048
     Dates: start: 20171118, end: 20171206
  3. MAINTATE [Concomitant]
     Active Substance: BISOPROLOL FUMARATE
  4. FEBURIC [Concomitant]
     Active Substance: FEBUXOSTAT
  5. TAKEPRON [Concomitant]
     Active Substance: LANSOPRAZOLE
  6. HARNAL [Concomitant]
     Active Substance: TAMSULOSIN HYDROCHLORIDE

REACTIONS (2)
  - Decreased appetite [Recovered/Resolved]
  - Marasmus [Unknown]

NARRATIVE: CASE EVENT DATE: 20171125
